FAERS Safety Report 8951663 (Version 1)
Quarter: 2012Q4

REPORT INFORMATION
  Report Type: 
  Country: US (occurrence: US)
  Receive Date: 20121204
  Receipt Date: 20121204
  Transmission Date: 20130627
  Serious: Yes (Other)
  Sender: FDA-Public Use
  Company Number: CHPA2012US024128

PATIENT
  Age: 81 Year
  Sex: Female

DRUGS (2)
  1. PERDIEM [Suspect]
     Indication: CONSTIPATION
     Dosage: 2 to 8 DF, DAILY
     Route: 048
  2. PERDIEM [Suspect]
     Dosage: Unk, Unk

REACTIONS (4)
  - Parkinson^s disease [Not Recovered/Not Resolved]
  - Drug dependence [Not Recovered/Not Resolved]
  - Memory impairment [Not Recovered/Not Resolved]
  - Bowel movement irregularity [Not Recovered/Not Resolved]
